FAERS Safety Report 9268217 (Version 1)
Quarter: 2013Q2

REPORT INFORMATION
  Report Type: Spontaneous
  Country: US (occurrence: US)
  Receive Date: 20130502
  Receipt Date: 20130502
  Transmission Date: 20140414
  Serious: Yes (Other)
  Sender: FDA-Public Use
  Company Number: US-ALEXION-A201201348

PATIENT
  Age: 70 Year
  Sex: Male

DRUGS (16)
  1. SOLIRIS 300MG [Suspect]
     Indication: PAROXYSMAL NOCTURNAL HAEMOGLOBINURIA
     Dosage: 900 MG, Q2W
     Route: 042
     Dates: start: 20090720, end: 20091026
  2. SOLIRIS 300MG [Suspect]
     Dosage: 600 MG, QW (RESTARTED)
     Route: 042
     Dates: start: 20110714, end: 20110811
  3. SOLIRIS 300MG [Suspect]
     Dosage: 900 MG, Q2W
     Route: 042
     Dates: start: 20110811
  4. ASA [Concomitant]
     Dosage: 325 MG, QD
     Route: 048
  5. TYLENOL PM [Concomitant]
     Dosage: PRN
     Route: 048
  6. PLAVIX [Concomitant]
     Dosage: 75 MG, QD
     Route: 048
  7. METOPROLOL [Concomitant]
     Dosage: 50 MG, QD
     Route: 048
  8. RAMIPRIL [Concomitant]
     Dosage: 5 MG, QD
     Route: 048
  9. OXYCODONE [Concomitant]
     Dosage: 5/325 1-2 TABS Q4-6H PRN
     Route: 048
  10. HYDROCODONE [Concomitant]
     Dosage: 5/500 MG PRN
     Route: 048
  11. TRIAMCINOLONE [Concomitant]
     Indication: STOMATITIS
     Dosage: 0.1 %, PRN - CREAM
     Route: 061
  12. TRIAMCINOLONE [Concomitant]
     Dosage: 0.1 %, TID - DENTAL PASTE
     Route: 048
  13. CALTRATE WITH VITAMIN D [Concomitant]
     Dosage: 1 TAB QD
     Route: 048
  14. FOLTX [Concomitant]
     Dosage: 1 TAB QD
     Route: 048
  15. TYLENOL SINUS [Concomitant]
     Dosage: 1-2 TABS PRN
     Route: 048
  16. TYLENOL [Concomitant]
     Dosage: 650 MG (325 MG X 2 TABS), PRN
     Route: 048

REACTIONS (1)
  - Acute myocardial infarction [Unknown]
